FAERS Safety Report 5938782-X (Version None)
Quarter: 2008Q4

REPORT INFORMATION
  Report Type: 
  Country: None (occurrence: None)
  Receive Date: 20081103
  Receipt Date: 20081020
  Transmission Date: 20090506
  Serious: Yes (Other)
  Sender: FDA-Public Use
  Company Number: US-BAYER-200828831GPV

PATIENT
  Age: 52 Year
  Sex: Female

DRUGS (5)
  1. CAMPATH [Suspect]
     Indication: COMPLICATIONS OF TRANSPLANTED KIDNEY
     Route: 065
     Dates: start: 20060101
  2. PREDNISONE [Suspect]
     Indication: IMMUNOSUPPRESSION
  3. TACROLIMUS [Concomitant]
     Indication: IMMUNOSUPPRESSION
     Dates: start: 20060101, end: 20060101
  4. MYCOPHENOLATE MOFETIL [Concomitant]
     Indication: IMMUNOSUPPRESSION
     Dates: start: 20060101
  5. CYCLOSPORINE [Concomitant]
     Indication: IMMUNOSUPPRESSION
     Dates: start: 20060101

REACTIONS (9)
  - ASCITES [None]
  - CHOLELITHIASIS [None]
  - GRAFT DYSFUNCTION [None]
  - HEPATIC CIRRHOSIS [None]
  - HEPATITIS C RNA POSITIVE [None]
  - HEPATITIS CHOLESTATIC [None]
  - JAUNDICE [None]
  - RENAL TUBULAR NECROSIS [None]
  - TRANSPLANT REJECTION [None]
